FAERS Safety Report 4845969-6 (Version None)
Quarter: 2005Q4

REPORT INFORMATION
  Report Type: 
  Country: None (occurrence: None)
  Receive Date: 20051130
  Receipt Date: 20051121
  Transmission Date: 20060501
  Serious: Yes (Other)
  Sender: FDA-Public Use
  Company Number: SUS1-2005-00834

PATIENT
  Age: 14 Year
  Sex: Female

DRUGS (3)
  1. ADDERALL 10 [Suspect]
     Indication: ATTENTION DEFICIT/HYPERACTIVITY DISORDER
     Dosage: 20 MG, 1X/DAY: QD, UNK
     Route: 065
  2. OTC COUGH MEDICINE [Concomitant]
  3. NEXIUM [Concomitant]

REACTIONS (5)
  - DYSTONIA [None]
  - MOOD ALTERED [None]
  - MUSCLE TIGHTNESS [None]
  - MUSCULOSKELETAL STIFFNESS [None]
  - TRISMUS [None]
